FAERS Safety Report 4485080-X (Version None)
Quarter: 2004Q4

REPORT INFORMATION
  Report Type: 
  Country: None (occurrence: None)
  Receive Date: 20041022
  Receipt Date: 20041022
  Transmission Date: 20050328
  Serious: Yes (Other)
  Sender: FDA-Public Use
  Company Number: None

PATIENT
  Age: 38 Year
  Sex: Female
  Weight: 70.7611 kg

DRUGS (3)
  1. METOCLOPRAMIDE INJECTION [Suspect]
     Indication: PREMEDICATION
     Dosage: 10 MG IV X 1 DOSE
     Route: 042
     Dates: start: 20041019
  2. LACTATED RINGER'S [Concomitant]
  3. PEPCID [Concomitant]

REACTIONS (3)
  - ABNORMAL BEHAVIOUR [None]
  - FORMICATION [None]
  - RESTLESSNESS [None]
